FAERS Safety Report 6407646-X (Version None)
Quarter: 2009Q4

REPORT INFORMATION
  Report Type: 
  Country: None (occurrence: None)
  Receive Date: 20091020
  Receipt Date: 20091012
  Transmission Date: 20100525
  Serious: Yes (Disabling, Other)
  Sender: FDA-Public Use
  Company Number: PHEH2009US10972

PATIENT
  Sex: Female

DRUGS (1)
  1. FEMARA [Suspect]
     Dosage: 2.5 MG, QD
     Route: 048
     Dates: start: 20090327

REACTIONS (4)
  - BLINDNESS UNILATERAL [None]
  - RETINAL ARTERY OCCLUSION [None]
  - VISION BLURRED [None]
  - VISUAL ACUITY REDUCED [None]
